FAERS Safety Report 5018120-X (Version None)
Quarter: 2006Q2

REPORT INFORMATION
  Report Type: 
  Country: None (occurrence: None)
  Receive Date: 20060530
  Receipt Date: 20060518
  Transmission Date: 20061013
  Serious: Yes (Hospitalization, Other)
  Sender: FDA-Public Use
  Company Number: 2006044339

PATIENT
  Age: 60 Year
  Sex: Female
  Weight: 76.2043 kg

DRUGS (5)
  1. CELEBREX [Suspect]
     Indication: ARTHRALGIA
     Dosage: (200 MG)
     Dates: start: 20040528
  2. CELEBREX [Suspect]
     Indication: CONNECTIVE TISSUE DISORDER
     Dosage: (200 MG)
     Dates: start: 20040528
  3. CELEBREX [Suspect]
     Indication: FIBROMYALGIA
     Dosage: (200 MG)
     Dates: start: 20040528
  4. CELEBREX [Suspect]
     Indication: PLANTAR FASCIITIS
     Dosage: (200 MG)
     Dates: start: 20040528
  5. CELEBREX [Suspect]
     Indication: RAYNAUD'S PHENOMENON
     Dosage: (200 MG)
     Dates: start: 20040528

REACTIONS (8)
  - ANGIOPATHY [None]
  - BRAIN STEM INFARCTION [None]
  - CARDIAC DISORDER [None]
  - CEREBROVASCULAR ACCIDENT [None]
  - CORONARY ARTERY SURGERY [None]
  - EMBOLISM [None]
  - INTERNATIONAL NORMALISED RATIO DECREASED [None]
  - MITRAL VALVE REPAIR [None]
